FAERS Safety Report 7898026-9 (Version None)
Quarter: 2011Q4

REPORT INFORMATION
  Report Type: 
  Country: None (occurrence: None)
  Receive Date: 20111107
  Receipt Date: 20111107
  Transmission Date: 20120403
  Serious: No
  Sender: FDA-Public Use
  Company Number: None

PATIENT
  Age: 51 Year
  Sex: Female
  Weight: 72.574 kg

DRUGS (1)
  1. HUMIRA [Suspect]
     Indication: PSORIASIS
     Dosage: 40 MG
     Route: 058
     Dates: start: 20110301, end: 20111027

REACTIONS (3)
  - CONDITION AGGRAVATED [None]
  - PUSTULAR PSORIASIS [None]
  - PSORIASIS [None]
